FAERS Safety Report 4312644-6 (Version None)
Quarter: 2004Q1

REPORT INFORMATION
  Report Type: 
  Country: None (occurrence: None)
  Receive Date: 20040305
  Receipt Date: 20040218
  Transmission Date: 20041129
  Serious: Yes (Death)
  Sender: FDA-Public Use
  Company Number: 7514

PATIENT
  Age: 33 Year
  Sex: Male

DRUGS (1)
  1. DROPERIDOL [Suspect]
     Indication: AGITATION
     Dosage: 5 MG ONCE IM
     Route: 030

REACTIONS (7)
  - CARDIO-RESPIRATORY ARREST [None]
  - CARDIOMEGALY [None]
  - DRUG TOXICITY [None]
  - PULSE ABSENT [None]
  - SUDDEN DEATH [None]
  - TOXICOLOGIC TEST ABNORMAL [None]
  - VENTRICULAR TACHYCARDIA [None]
